FAERS Safety Report 12562416 (Version 1)
Quarter: 2016Q3

REPORT INFORMATION
  Report Type: Spontaneous
  Country: DE (occurrence: DE)
  Receive Date: 20160715
  Receipt Date: 20160715
  Transmission Date: 20161109
  Serious: Yes (Hospitalization)
  Sender: FDA-Public Use
  Company Number: DE-PFIZER INC-2016298972

PATIENT
  Sex: Female

DRUGS (4)
  1. CLIMOPAX [Suspect]
     Active Substance: ESTROGENS, CONJUGATED\MEDROXYPROGESTERONE ACETATE
     Indication: HORMONE REPLACEMENT THERAPY
     Dosage: 1 DF, ALTERNATE DAY
  2. CLIMOPAX [Suspect]
     Active Substance: ESTROGENS, CONJUGATED\MEDROXYPROGESTERONE ACETATE
     Dosage: 0.75 DF (3/4 DOSE)
     Dates: start: 20160506, end: 20160602
  3. CLIMOPAX [Suspect]
     Active Substance: ESTROGENS, CONJUGATED\MEDROXYPROGESTERONE ACETATE
     Dosage: 0.5 DF, UNK
     Dates: start: 20160603
  4. WILD YAMS PLUS [Concomitant]
     Dosage: UNK
     Dates: start: 20160528

REACTIONS (11)
  - Cardiovascular disorder [Unknown]
  - Wrong technique in product usage process [Unknown]
  - Abdominal distension [Unknown]
  - Agitation [Unknown]
  - Asthenia [Unknown]
  - Abdominal discomfort [Unknown]
  - Nausea [Unknown]
  - Atrial fibrillation [Unknown]
  - Insomnia [Unknown]
  - Drug intolerance [Unknown]
  - Tremor [Unknown]

NARRATIVE: CASE EVENT DATE: 20160609
